FAERS Safety Report 6180732-8 (Version None)
Quarter: 2009Q2

REPORT INFORMATION
  Report Type: 
  Country: None (occurrence: None)
  Receive Date: 20090506
  Receipt Date: 20090430
  Transmission Date: 20091009
  Serious: Yes (Death, Hospitalization)
  Sender: FDA-Public Use
  Company Number: DK-ROCHE-630694

PATIENT
  Sex: Male
  Weight: 78 kg

DRUGS (2)
  1. XELODA [Suspect]
     Indication: RECTAL CANCER
     Route: 048
     Dates: start: 20090317
  2. OXALIPLATIN [Concomitant]
     Indication: RECTAL CANCER
     Dosage: DRUG NAME REOPRTED AS OXALIPLATIN ^EBEWE^.  ROUTE: IV (NOS)
     Route: 042
     Dates: start: 20090317

REACTIONS (1)
  - DIARRHOEA [None]
